FAERS Safety Report 8395820-5 (Version None)
Quarter: 2012Q2

REPORT INFORMATION
  Report Type: 
  Country: None (occurrence: None)
  Receive Date: 20120530
  Receipt Date: 20120529
  Transmission Date: 20120825
  Serious: Yes (Other)
  Sender: FDA-Public Use
  Company Number: US-ROCHE-1066796

PATIENT
  Sex: Male
  Weight: 72.186 kg

DRUGS (2)
  1. AVASTIN [Suspect]
     Indication: ASTROCYTOMA
     Route: 042
     Dates: start: 20100626, end: 20120207
  2. KEPPRA [Concomitant]
     Indication: CONVULSION
     Route: 048

REACTIONS (3)
  - HYPONATRAEMIA [None]
  - CONVULSION [None]
  - CEREBROVASCULAR ACCIDENT [None]
